FAERS Safety Report 22276378 (Version 2)
Quarter: 2023Q4

REPORT INFORMATION
  Report Type: Other
  Country: CO (occurrence: CO)
  Receive Date: 20230503
  Receipt Date: 20231019
  Transmission Date: 20240109
  Serious: No
  Sender: FDA-Public Use
  Company Number: CO-TOLMAR, INC.-23CO040375

PATIENT
  Age: 0 Year
  Sex: Male
  Weight: 80 kg

DRUGS (2)
  1. ELIGARD [Suspect]
     Active Substance: LEUPROLIDE ACETATE
     Indication: Prostate cancer
     Dosage: 45 MILLIGRAM, Q 6 MONTH
     Route: 058
     Dates: start: 20230331
  2. ELIGARD [Suspect]
     Active Substance: LEUPROLIDE ACETATE
     Dosage: 45 MILLIGRAM, Q 6 MONTH
     Route: 058
     Dates: start: 20231002

REACTIONS (6)
  - Weight decreased [Not Recovered/Not Resolved]
  - Influenza [Unknown]
  - Decreased appetite [Not Recovered/Not Resolved]
  - Asthenia [Not Recovered/Not Resolved]
  - Malaise [Not Recovered/Not Resolved]
  - Nausea [Not Recovered/Not Resolved]

NARRATIVE: CASE EVENT DATE: 20230412
